FAERS Safety Report 20435972 (Version 3)
Quarter: 2022Q1

REPORT INFORMATION
  Report Type: Spontaneous
  Country: DE (occurrence: DE)
  Receive Date: 20220207
  Receipt Date: 20220303
  Transmission Date: 20220423
  Serious: Yes (Life-Threatening, Hospitalization, Other)
  Sender: FDA-Public Use
  Company Number: DE-STADA-241246

PATIENT
  Age: 52 Year
  Sex: Male

DRUGS (7)
  1. DOCETAXEL [Suspect]
     Active Substance: DOCETAXEL
     Indication: Hypopharyngeal cancer
     Dosage: UNK  (6 CYCLES)
     Route: 065
     Dates: start: 201907
  2. CISPLATIN [Suspect]
     Active Substance: CISPLATIN
     Indication: Hypopharyngeal cancer
     Dosage: UNK
     Route: 065
     Dates: start: 201808
  3. FLUOROURACIL [Suspect]
     Active Substance: FLUOROURACIL
     Indication: Hypopharyngeal cancer
     Dosage: UNK
     Route: 065
     Dates: start: 201808
  4. CALCIUM MONOETHYLFUMARATE\DIMETHYL FUMARATE\MAGNESIUM MONOETHYLFUMARAT [Suspect]
     Active Substance: CALCIUM MONOETHYLFUMARATE\DIMETHYL FUMARATE\MAGNESIUM MONOETHYLFUMARATE\ZINC MONOETHYLFUMARATE
     Indication: Psoriasis
     Dosage: UNK
     Route: 065
     Dates: start: 201808, end: 202003
  5. NIVOLUMAB [Suspect]
     Active Substance: NIVOLUMAB
     Indication: Hypopharyngeal cancer
     Dosage: UNK (3 CYCLES)
     Route: 065
     Dates: start: 201904
  6. MEFLOQUINE [Concomitant]
     Active Substance: MEFLOQUINE
     Indication: Progressive multifocal leukoencephalopathy
     Dosage: 250 MILLIGRAM, EVERY WEEK
     Route: 065
     Dates: start: 202003
  7. MIRTAZAPINE [Concomitant]
     Active Substance: MIRTAZAPINE
     Indication: Progressive multifocal leukoencephalopathy
     Dosage: 15 MILLIGRAM, ONCE A DAY
     Route: 065
     Dates: start: 202003

REACTIONS (4)
  - JC virus infection [Recovering/Resolving]
  - Progressive multifocal leukoencephalopathy [Recovering/Resolving]
  - Lymphopenia [Unknown]
  - Off label use [Unknown]

NARRATIVE: CASE EVENT DATE: 20180801
